FAERS Safety Report 8019030-6 (Version None)
Quarter: 2012Q1

REPORT INFORMATION
  Report Type: 
  Country: None (occurrence: None)
  Receive Date: 20120103
  Receipt Date: 20111223
  Transmission Date: 20120608
  Serious: Yes (Other)
  Sender: FDA-Public Use
  Company Number: DE-ELI_LILLY_AND_COMPANY-DE201112007169

PATIENT
  Age: 8 Year
  Sex: Male

DRUGS (1)
  1. STRATTERA [Suspect]
     Indication: ATTENTION DEFICIT/HYPERACTIVITY DISORDER
     Dosage: 18 MG, UNKNOWN
     Route: 048
     Dates: start: 20111201, end: 20111219

REACTIONS (6)
  - AGGRESSION [None]
  - ABNORMAL BEHAVIOUR [None]
  - ABDOMINAL PAIN [None]
  - REBOUND EFFECT [None]
  - TOURETTE'S DISORDER [None]
  - BLOOD PRESSURE INCREASED [None]
